FAERS Safety Report 7031352-4 (Version None)
Quarter: 2010Q4

REPORT INFORMATION
  Report Type: 
  Country: None (occurrence: None)
  Receive Date: 20101006
  Receipt Date: 20100923
  Transmission Date: 20110411
  Serious: Yes (Death)
  Sender: FDA-Public Use
  Company Number: GB-TYCO HEALTHCARE/MALLINCKRODT-T201002067

PATIENT

DRUGS (3)
  1. PAMELOR [Suspect]
     Dosage: UNK
  2. ANAFRANIL CAP [Suspect]
     Dosage: UNK
  3. FLUOXETINE [Suspect]
     Dosage: UNK

REACTIONS (1)
  - DRUG TOXICITY [None]
